FAERS Safety Report 25511909 (Version 2)
Quarter: 2025Q3

REPORT INFORMATION
  Report Type: Spontaneous
  Country: US (occurrence: US)
  Receive Date: 20250703
  Receipt Date: 20250710
  Transmission Date: 20251021
  Serious: Yes (Other)
  Sender: FRESENIUS KABI
  Company Number: US-FreseniusKabi-FK202508888

PATIENT
  Age: 67 Year
  Sex: Female
  Weight: 68.6 kg

DRUGS (7)
  1. PACLITAXEL [Suspect]
     Active Substance: PACLITAXEL
     Indication: Non-small cell lung cancer metastatic
     Dosage: ROUTE: INFUSION?INJECTION?DAY 1 CYCLE 2
     Route: 042
     Dates: start: 20250625, end: 20250625
  2. FAMOTIDINE [Suspect]
     Active Substance: FAMOTIDINE
     Indication: Prophylaxis
     Route: 042
     Dates: start: 20250625
  3. PEMBROLIZUMAB [Suspect]
     Active Substance: PEMBROLIZUMAB
     Indication: Non-small cell lung cancer metastatic
     Route: 042
     Dates: start: 20250625, end: 20250625
  4. PALONOSETRON [Concomitant]
     Active Substance: PALONOSETRON
     Indication: Antiemetic supportive care
     Route: 042
     Dates: start: 20250625
  5. DEXAMETHASONE [Concomitant]
     Active Substance: DEXAMETHASONE
     Indication: Prophylaxis
     Route: 042
     Dates: start: 20250625
  6. FOSAPREPITANT [Concomitant]
     Active Substance: FOSAPREPITANT
     Indication: Antiemetic supportive care
     Route: 042
     Dates: start: 20250625
  7. DIPHENHYDRAMINE [Concomitant]
     Active Substance: DIPHENHYDRAMINE
     Indication: Prophylaxis
     Route: 048
     Dates: start: 20250625

REACTIONS (3)
  - Hypersensitivity [Unknown]
  - Seizure like phenomena [Unknown]
  - Off label use [Unknown]

NARRATIVE: CASE EVENT DATE: 20250625
